FAERS Safety Report 16179738 (Version 3)
Quarter: 2019Q2

REPORT INFORMATION
  Report Type: Spontaneous
  Country: US (occurrence: US)
  Receive Date: 20190410
  Receipt Date: 20190521
  Transmission Date: 20190711
  Serious: Yes (Hospitalization, Other)
  Sender: FDA-Public Use
  Company Number: US-TAKEDA-2019TUS021009

PATIENT
  Age: 34 Year
  Sex: Female
  Weight: 97.05 kg

DRUGS (6)
  1. PRENATAL VITAMINS                  /02014401/ [Concomitant]
     Active Substance: VITAMINS
     Dosage: UNK
     Route: 065
  2. TRINTELLIX [Suspect]
     Active Substance: VORTIOXETINE HYDROBROMIDE
     Indication: MAJOR DEPRESSION
     Dosage: 10 MILLIGRAM, QD
     Route: 065
     Dates: start: 20190402, end: 20190403
  3. VITAMIN D                          /00107901/ [Concomitant]
     Active Substance: ERGOCALCIFEROL
     Dosage: UNK
     Route: 065
  4. PHENTERMINE W/TOPIRAMATE [Concomitant]
     Active Substance: PHENTERMINE HYDROCHLORIDE\TOPIRAMATE
     Dosage: UNK
     Route: 065
     Dates: start: 20190308, end: 20190402
  5. VITAMIN B12 [Concomitant]
     Active Substance: CYANOCOBALAMIN
     Dosage: UNK
     Route: 065
  6. PHENTERMINE. [Concomitant]
     Active Substance: PHENTERMINE
     Dosage: UNK
     Route: 065
     Dates: start: 20190404

REACTIONS (6)
  - Blood pressure increased [Not Recovered/Not Resolved]
  - Angle closure glaucoma [Not Recovered/Not Resolved]
  - Retinal tear [Not Recovered/Not Resolved]
  - Asthenia [Not Recovered/Not Resolved]
  - Post procedural complication [Not Recovered/Not Resolved]
  - Pregnancy [Unknown]

NARRATIVE: CASE EVENT DATE: 201904
